FAERS Safety Report 6386603-6 (Version None)
Quarter: 2009Q4

REPORT INFORMATION
  Report Type: 
  Country: None (occurrence: None)
  Receive Date: 20091002
  Receipt Date: 20090306
  Transmission Date: 20100525
  Serious: No
  Sender: FDA-Public Use
  Company Number: US-ASTRAZENECA-2009UW06020

PATIENT
  Age: 43 Year
  Sex: Female
  Weight: 48.1 kg

DRUGS (1)
  1. ARIMIDEX [Suspect]
     Indication: ENDOMETRIOSIS
     Route: 048
     Dates: start: 20081001

REACTIONS (4)
  - HOT FLUSH [None]
  - MALAISE [None]
  - MEMORY IMPAIRMENT [None]
  - MIGRAINE [None]
